FAERS Safety Report 10722501 (Version 4)
Quarter: 2015Q1

REPORT INFORMATION
  Report Type: Spontaneous
  Country: BR (occurrence: BR)
  Receive Date: 20150119
  Receipt Date: 20150212
  Transmission Date: 20150721
  Serious: Yes (Life-Threatening, Hospitalization)
  Sender: FDA-Public Use
  Company Number: BR-ASTRAZENECA-2015SE03806

PATIENT
  Age: 31 Year
  Sex: Female
  Weight: 85 kg

DRUGS (11)
  1. SEDALEX [Concomitant]
     Indication: HEADACHE
     Dosage: AS REQUIRED
     Route: 048
     Dates: start: 2011
  2. BROMAZEPAM [Concomitant]
     Active Substance: BROMAZEPAM
     Indication: DEPRESSION
     Route: 048
     Dates: start: 1998
  3. UNKNOWN [Suspect]
     Active Substance: UNSPECIFIED INGREDIENT
     Indication: DEPRESSION
     Route: 065
     Dates: start: 2001, end: 2001
  4. SERTRALINE [Concomitant]
     Active Substance: SERTRALINE HYDROCHLORIDE
     Indication: DEPRESSION
     Dosage: AS REQUIRED
     Route: 048
     Dates: start: 1998, end: 2001
  5. NIMESULIDE [Concomitant]
     Active Substance: NIMESULIDE
     Indication: BACK PAIN
     Dosage: AS REQUIRED
     Dates: start: 1999
  6. VOLTAREN [Concomitant]
     Active Substance: DICLOFENAC SODIUM
     Indication: BACK PAIN
     Dosage: AS REQUIRED
     Route: 048
  7. SELOZOK [Suspect]
     Active Substance: METOPROLOL SUCCINATE
     Indication: HYPERTENSION
     Route: 048
     Dates: start: 2010
  8. SELOZOK [Suspect]
     Active Substance: METOPROLOL SUCCINATE
     Indication: HYPERTENSION
     Route: 048
     Dates: start: 20150112
  9. OMEPRAZOLE. [Suspect]
     Active Substance: OMEPRAZOLE
     Indication: GASTRITIS
     Dosage: AS REQUIRED
     Route: 048
     Dates: start: 1990
  10. SEDALEX [Concomitant]
     Indication: MUSCLE RELAXANT THERAPY
     Dosage: AS REQUIRED
     Route: 048
     Dates: start: 2011
  11. PYRIDIUM [Concomitant]
     Active Substance: PHENAZOPYRIDINE
     Indication: CYSTITIS
     Dosage: AS REQUIRED
     Route: 048
     Dates: start: 2005

REACTIONS (29)
  - Suicide attempt [Recovered/Resolved]
  - Heart rate decreased [Recovered/Resolved]
  - Dizziness [Not Recovered/Not Resolved]
  - Hypotension [Not Recovered/Not Resolved]
  - Malaise [Recovered/Resolved]
  - Subcutaneous abscess [Not Recovered/Not Resolved]
  - Eye swelling [Not Recovered/Not Resolved]
  - Diarrhoea [Not Recovered/Not Resolved]
  - Vision blurred [Unknown]
  - Drug dose omission [Recovered/Resolved]
  - Off label use [Not Recovered/Not Resolved]
  - Palatal disorder [Not Recovered/Not Resolved]
  - Depression [Recovered/Resolved]
  - Dry mouth [Not Recovered/Not Resolved]
  - Somnolence [Recovered/Resolved]
  - Overdose [Recovered/Resolved]
  - Headache [Not Recovered/Not Resolved]
  - Neck pain [Not Recovered/Not Resolved]
  - Fatigue [Recovered/Resolved]
  - Endometriosis [Recovered/Resolved]
  - Blood pressure decreased [Recovered/Resolved]
  - Memory impairment [Unknown]
  - Tachycardia [Recovered/Resolved]
  - Hyperhidrosis [Not Recovered/Not Resolved]
  - Weight decreased [Not Recovered/Not Resolved]
  - Back pain [Recovering/Resolving]
  - Cystitis [Not Recovered/Not Resolved]
  - Depressed mood [Not Recovered/Not Resolved]
  - Hypertension [Recovered/Resolved]

NARRATIVE: CASE EVENT DATE: 1998
